FAERS Safety Report 7733762-6 (Version None)
Quarter: 2011Q3

REPORT INFORMATION
  Report Type: 
  Country: None (occurrence: None)
  Receive Date: 20110907
  Receipt Date: 20110829
  Transmission Date: 20111222
  Serious: Yes (Hospitalization, Other)
  Sender: FDA-Public Use
  Company Number: PHHY2011CA77430

PATIENT
  Sex: Female

DRUGS (9)
  1. DOMPERIDONE [Concomitant]
     Dosage: 10 MG, QID
  2. METFORMIN HCL [Concomitant]
     Dosage: 500 MG, BID
  3. CLOZAPINE [Suspect]
     Indication: BIPOLAR DISORDER
     Dosage: 25 MG TID + 300 MG HS
     Route: 048
     Dates: start: 20110406, end: 20110604
  4. CRESTOR [Concomitant]
     Dosage: 10 MG, HS
  5. LITHIUM [Concomitant]
     Dosage: UNK UKN, UNK
  6. CLOZAPINE [Suspect]
     Indication: SCHIZOPHRENIA
  7. PANTOPRAZOLE [Concomitant]
     Dosage: 40 MG, DAILY
  8. ASPIRIN [Concomitant]
     Dosage: 81 MG, DAILY
  9. CLONAZEPAM [Concomitant]
     Dosage: 2 MG, QHS

REACTIONS (4)
  - COGNITIVE DISORDER [None]
  - DRUG INEFFECTIVE [None]
  - SYNCOPE [None]
  - DRUG INTOLERANCE [None]
